FAERS Safety Report 10658134 (Version 2)
Quarter: 2014Q4

REPORT INFORMATION
  Report Type: Spontaneous
  Country: US (occurrence: US)
  Receive Date: 20141217
  Receipt Date: 20141217
  Transmission Date: 20150529
  Serious: No
  Sender: FDA-Public Use
  Company Number: US-GLAXOSMITHKLINE-A1064094A

PATIENT

DRUGS (2)
  1. VOTRIENT [Suspect]
     Active Substance: PAZOPANIB HYDROCHLORIDE
     Indication: CARTILAGE NEOPLASM
  2. VOTRIENT [Suspect]
     Active Substance: PAZOPANIB HYDROCHLORIDE
     Indication: BONE CANCER
     Route: 048

REACTIONS (10)
  - Headache [Unknown]
  - Neoplasm progression [Unknown]
  - Fall [Unknown]
  - Skin ulcer [Unknown]
  - Hair colour changes [Unknown]
  - Dizziness [Unknown]
  - Drug dose omission [Unknown]
  - Hypoaesthesia [Unknown]
  - Rash [Unknown]
  - Decreased appetite [Unknown]
